FAERS Safety Report 9564352 (Version 2)
Quarter: 2013Q4

REPORT INFORMATION
  Report Type: Spontaneous
  Country: US (occurrence: US)
  Receive Date: 20130930
  Receipt Date: 20131018
  Transmission Date: 20140711
  Serious: Yes (Hospitalization, Disabling)
  Sender: FDA-Public Use
  Company Number: US-009507513-1309USA011614

PATIENT
  Sex: Male

DRUGS (2)
  1. NASONEX [Suspect]
     Indication: SINUSITIS
     Dosage: UNK
     Route: 045
     Dates: start: 201308
  2. FLUTICASONE [Suspect]

REACTIONS (7)
  - Arthritis bacterial [Unknown]
  - Arthropathy [Unknown]
  - Cellulitis [Unknown]
  - International normalised ratio [Unknown]
  - Sinusitis [Unknown]
  - Product quality issue [Unknown]
  - Drug dose omission [Unknown]
